FAERS Safety Report 6814744-5 (Version None)
Quarter: 2010Q3

REPORT INFORMATION
  Report Type: 
  Country: None (occurrence: None)
  Receive Date: 20100702
  Receipt Date: 20100629
  Transmission Date: 20110219
  Serious: Yes (Death)
  Sender: FDA-Public Use
  Company Number: CH-ROCHE-682993

PATIENT
  Sex: Male
  Weight: 66 kg

DRUGS (1)
  1. METHOXY POLYETHYLENE GLYCOL-EPOETIN BETA [Suspect]
     Route: 065
     Dates: start: 20090501, end: 20090706

REACTIONS (2)
  - CARDIAC FAILURE ACUTE [None]
  - PLATELET COUNT DECREASED [None]
